FAERS Safety Report 7440032-2 (Version None)
Quarter: 2011Q2

REPORT INFORMATION
  Report Type: 
  Country: None (occurrence: None)
  Receive Date: 20110427
  Receipt Date: 20110418
  Transmission Date: 20111010
  Serious: Yes (Other)
  Sender: FDA-Public Use
  Company Number: FR-GENENTECH-317224

PATIENT

DRUGS (3)
  1. RITUXIMAB [Suspect]
     Indication: DIFFUSE LARGE B-CELL LYMPHOMA
     Dosage: UNK UNK, 4/WEEK
     Route: 042
  2. INTERFERON ALFA-2B [Suspect]
     Indication: DIFFUSE LARGE B-CELL LYMPHOMA
     Dosage: 1.5 MIU, 3/WEEK
     Route: 058
  3. PROLEUKIN [Suspect]
     Indication: DIFFUSE LARGE B-CELL LYMPHOMA
     Dosage: 6 MIU, 3/WEEK
     Route: 058

REACTIONS (2)
  - NEUTROPENIA [None]
  - HYPOTHYROIDISM [None]
